FAERS Safety Report 19655803 (Version 3)
Quarter: 2022Q2

REPORT INFORMATION
  Report Type: Spontaneous
  Country: US (occurrence: US)
  Receive Date: 20210804
  Receipt Date: 20220407
  Transmission Date: 20220720
  Serious: Yes (Hospitalization, Other)
  Sender: FDA-Public Use
  Company Number: US-GLAXOSMITHKLINE-US2021GSK165823

PATIENT
  Sex: Female

DRUGS (3)
  1. ZANTAC [Suspect]
     Active Substance: RANITIDINE HYDROCHLORIDE
     Indication: Dyspepsia
     Dosage: 150 MG, QD
     Route: 065
     Dates: start: 1990, end: 2019
  2. ZANTAC [Suspect]
     Active Substance: RANITIDINE HYDROCHLORIDE
     Indication: Dyspepsia
  3. ZANTAC [Suspect]
     Active Substance: RANITIDINE HYDROCHLORIDE
     Indication: Dyspepsia
     Dosage: 150 MG, QD
     Route: 065
     Dates: start: 1990, end: 2019

REACTIONS (11)
  - Breast mass [Unknown]
  - Breast cancer [Unknown]
  - Metastases to breast [Unknown]
  - Breast cyst [Unknown]
  - Breast disorder [Unknown]
  - Breast calcifications [Unknown]
  - Breast induration [Unknown]
  - Erythema [Unknown]
  - Breast pain [Unknown]
  - Scar [Unknown]
  - Breast neoplasm [Unknown]
